FAERS Safety Report 20592549 (Version 1)
Quarter: 2022Q1

REPORT INFORMATION
  Report Type: Spontaneous
  Country: US (occurrence: None)
  Receive Date: 20220314
  Receipt Date: 20220314
  Transmission Date: 20220423
  Serious: No
  Sender: FDA-Public Use
  Company Number: US-ROCHE-2823403

PATIENT
  Sex: Female
  Weight: 60.836 kg

DRUGS (7)
  1. XOLAIR [Suspect]
     Active Substance: OMALIZUMAB
     Indication: Urticaria chronic
     Dosage: 2 SHOTS,  IN EACH ARM
     Route: 065
     Dates: end: 202011
  2. XOLAIR [Suspect]
     Active Substance: OMALIZUMAB
     Indication: Asthma
     Dosage: 2 SHOTS,  IN EACH ARM
     Route: 065
  3. PREDNISONE [Concomitant]
     Active Substance: PREDNISONE
     Indication: Urticaria
     Dosage: 3 TIMES A DAY, THEN 2 TIMES, THEN 1 TIME, THEN HALF UNTIL THE PREDNISONE WAS DONE
  4. PREDNISONE [Concomitant]
     Active Substance: PREDNISONE
  5. PREDNISONE [Concomitant]
     Active Substance: PREDNISONE
  6. SYMBICORT [Concomitant]
     Active Substance: BUDESONIDE\FORMOTEROL FUMARATE DIHYDRATE
     Indication: Asthma
  7. ALLEGRA [Concomitant]
     Active Substance: FEXOFENADINE HYDROCHLORIDE
     Indication: Asthma

REACTIONS (1)
  - COVID-19 [Recovered/Resolved]

NARRATIVE: CASE EVENT DATE: 20201201
